FAERS Safety Report 22966794 (Version 2)
Quarter: 2023Q4

REPORT INFORMATION
  Report Type: Spontaneous
  Country: US (occurrence: US)
  Receive Date: 20230921
  Receipt Date: 20231117
  Transmission Date: 20240109
  Serious: Yes (Hospitalization)
  Sender: FDA-Public Use
  Company Number: US-PFIZER INC-PV202300066149

PATIENT
  Age: 65 Year
  Sex: Male
  Weight: 77.11 kg

DRUGS (3)
  1. BRAFTOVI [Suspect]
     Active Substance: ENCORAFENIB
     Indication: Metastatic malignant melanoma
     Dosage: 450MG-6 CAP QD/TAKES 6 CAPSULES IN THE MORNING
     Dates: start: 2022
  2. BRAFTOVI [Suspect]
     Active Substance: ENCORAFENIB
     Dosage: IN THE MORNING
  3. MEKTOVI [Suspect]
     Active Substance: BINIMETINIB
     Indication: Metastatic malignant melanoma
     Dosage: 45MG-2 TAB BID/TAKES THREE IN THE MORNING AND THREE IN THE AFTERNOON
     Dates: start: 2022

REACTIONS (2)
  - Seizure [Unknown]
  - Product dose omission issue [Unknown]

NARRATIVE: CASE EVENT DATE: 20231001
